FAERS Safety Report 4298818-1 (Version None)
Quarter: 2004Q1

REPORT INFORMATION
  Report Type: 
  Country: None (occurrence: None)
  Receive Date: 20040126
  Receipt Date: 20031030
  Transmission Date: 20041129
  Serious: No
  Sender: FDA-Public Use
  Company Number: USA031051253

PATIENT
  Sex: Female

DRUGS (2)
  1. STRATTERA [Suspect]
     Dosage: 80 MG/IN THE MORNING
     Dates: start: 20031009
  2. FLONASE [Concomitant]

REACTIONS (7)
  - DIZZINESS [None]
  - DYSMENORRHOEA [None]
  - HOT FLUSH [None]
  - MENSTRUAL DISORDER [None]
  - MULTIPLE ALLERGIES [None]
  - NAUSEA [None]
  - TENSION HEADACHE [None]
